FAERS Safety Report 7106482-9 (Version None)
Quarter: 2010Q4

REPORT INFORMATION
  Report Type: 
  Country: None (occurrence: None)
  Receive Date: 20101116
  Receipt Date: 20101111
  Transmission Date: 20110411
  Serious: Yes (Other)
  Sender: FDA-Public Use
  Company Number: US-ABBOTT-10P-163-0685022-00

PATIENT
  Age: 25 Year
  Sex: Female

DRUGS (2)
  1. HUMIRA [Suspect]
     Indication: CROHN'S DISEASE
     Route: 058
     Dates: start: 20090401, end: 20100801
  2. HUMIRA [Suspect]
     Route: 058
     Dates: start: 20101003

REACTIONS (5)
  - CROHN'S DISEASE [None]
  - NUTRITIONAL CONDITION ABNORMAL [None]
  - PREMATURE LABOUR [None]
  - UTERINE DISORDER [None]
  - WEIGHT DECREASED [None]
